APPROVED DRUG PRODUCT: DROXIA
Active Ingredient: HYDROXYUREA
Strength: 400MG
Dosage Form/Route: CAPSULE;ORAL
Application: N016295 | Product #004
Applicant: WAYLIS THERAPEUTICS LLC
Approved: Feb 25, 1998 | RLD: Yes | RS: No | Type: DISCN